FAERS Safety Report 15365536 (Version 2)
Quarter: 2018Q3

REPORT INFORMATION
  Report Type: Spontaneous
  Country: AR (occurrence: AR)
  Receive Date: 20180910
  Receipt Date: 20180912
  Transmission Date: 20181010
  Serious: Yes (Other)
  Sender: FDA-Public Use
  Company Number: AR-ROCHE-2181128

PATIENT
  Age: 32 Year
  Sex: Female

DRUGS (6)
  1. AVASTIN [Suspect]
     Active Substance: BEVACIZUMAB
     Indication: SQUAMOUS CELL CARCINOMA OF THE CERVIX
     Route: 065
     Dates: start: 20160321, end: 20160505
  2. CARBOPLATIN. [Concomitant]
     Active Substance: CARBOPLATIN
     Indication: SQUAMOUS CELL CARCINOMA OF THE CERVIX
     Route: 065
     Dates: start: 20160321, end: 20160505
  3. PACLITAXEL. [Concomitant]
     Active Substance: PACLITAXEL
     Dosage: 3 MORE CYCLES WERE ADMINISTERED AND DOSE DISCONTINUED DUE TO DISEASE PROGRESSION.
     Route: 065
  4. CARBOPLATIN. [Concomitant]
     Active Substance: CARBOPLATIN
     Dosage: 3 MORE CYCLES WERE ADMINISTERED AND DOSE DISCONTINUED DUE TO DISEASE PROGRESSION.
     Route: 065
  5. PACLITAXEL. [Concomitant]
     Active Substance: PACLITAXEL
     Indication: SQUAMOUS CELL CARCINOMA OF THE CERVIX
     Dosage: COMPLETED 3 CYCLES
     Route: 065
     Dates: start: 20160321, end: 20160505
  6. AVASTIN [Suspect]
     Active Substance: BEVACIZUMAB
     Dosage: 3 MORE CYCLES WERE ADMINISTERED AND DOSE DISCONTINUED DUE TO DISEASE PROGRESSION.
     Route: 065

REACTIONS (2)
  - Urinary incontinence [Unknown]
  - Urogenital fistula [Unknown]
